FAERS Safety Report 16559700 (Version 4)
Quarter: 2019Q4

REPORT INFORMATION
  Report Type: Spontaneous
  Country: JP (occurrence: JP)
  Receive Date: 20190711
  Receipt Date: 20191025
  Transmission Date: 20200122
  Serious: Yes (Hospitalization, Other)
  Sender: FDA-Public Use
  Company Number: JP-SA-2019SA184846

PATIENT
  Age: 40 Year
  Sex: Female

DRUGS (5)
  1. FASENRA [Concomitant]
     Active Substance: BENRALIZUMAB
     Dosage: UNK
     Route: 065
  2. DUPIXENT [Suspect]
     Active Substance: DUPILUMAB
     Indication: ASTHMA
     Dosage: 300 MG, QOW
     Route: 058
     Dates: start: 20190612, end: 20190624
  3. FASENRA [Concomitant]
     Active Substance: BENRALIZUMAB
     Indication: ASTHMA
     Dosage: UNK
     Route: 065
     Dates: start: 201805, end: 20190612
  4. PREDNISOLONE. [Concomitant]
     Active Substance: PREDNISOLONE
     Indication: EOSINOPHILIC OTITIS MEDIA
  5. PREDNISOLONE. [Concomitant]
     Active Substance: PREDNISOLONE
     Indication: ASTHMA
     Dosage: 10 MG, QD
     Route: 048

REACTIONS (6)
  - Dyspnoea [Recovered/Resolved]
  - Pyrexia [Recovered/Resolved]
  - Pneumonia [Recovered/Resolved]
  - Productive cough [Recovered/Resolved]
  - Nasopharyngitis [Unknown]
  - Cough [Recovered/Resolved]

NARRATIVE: CASE EVENT DATE: 20190612
